FAERS Safety Report 10503937 (Version 1)
Quarter: 2014Q4

REPORT INFORMATION
  Report Type: Spontaneous
  Country: US (occurrence: None)
  Receive Date: 20141007
  Receipt Date: 20141007
  Transmission Date: 20150528
  Serious: No
  Sender: FDA-Public Use
  Company Number: None

PATIENT
  Age: 44 Year
  Sex: Female
  Weight: 93.9 kg

DRUGS (1)
  1. BELVIQ [Suspect]
     Active Substance: LORCASERIN HYDROCHLORIDE
     Indication: WEIGHT DECREASED
     Dosage: ONE TWICE A DAY
     Route: 048
     Dates: start: 20140920, end: 20140920

REACTIONS (5)
  - Fatigue [None]
  - Pyrexia [None]
  - Musculoskeletal disorder [None]
  - Decreased activity [None]
  - Migraine [None]

NARRATIVE: CASE EVENT DATE: 20140920
